FAERS Safety Report 4693320-7 (Version None)
Quarter: 2005Q2

REPORT INFORMATION
  Report Type: 
  Country: None (occurrence: None)
  Receive Date: 20050617
  Receipt Date: 20041213
  Transmission Date: 20051028
  Serious: Yes (Hospitalization)
  Sender: FDA-Public Use
  Company Number: US-MERCK-0412USA01582

PATIENT
  Age: 64 Year
  Sex: Female

DRUGS (2)
  1. VIOXX [Suspect]
     Indication: ARTHRITIS
     Route: 048
     Dates: start: 20011009, end: 20020524
  2. VIOXX [Suspect]
     Route: 048
     Dates: start: 20020524, end: 20021125

REACTIONS (7)
  - BLOOD PRESSURE INCREASED [None]
  - CARPAL TUNNEL SYNDROME [None]
  - CEREBROVASCULAR ACCIDENT [None]
  - DEMENTIA ALZHEIMER'S TYPE [None]
  - DYSPNOEA [None]
  - HEADACHE [None]
  - VISION BLURRED [None]
